FAERS Safety Report 10368122 (Version 1)
Quarter: 2014Q1

REPORT INFORMATION
  Report Type: Spontaneous
  Country: US (occurrence: None)
  Receive Date: 20140306
  Receipt Date: 20140306
  Transmission Date: 20141002
  Serious: Yes (Disabling, Other)
  Sender: FDA-Public Use
  Company Number: 168-21880-13083187

PATIENT
  Age: 71 Year
  Sex: Female

DRUGS (4)
  1. REVLIMID [Suspect]
     Indication: MYELODYSPLASTIC SYNDROME
     Route: 048
     Dates: start: 20130323
  2. DEFERON(DEFERON) (UNKNOWN) [Concomitant]
  3. PAIN MEDICATION(OTHER ANALGESICS AND ANTIPYRETICS)(UNKNOWN) [Concomitant]
  4. DEFERASIROX(DEFERASIROX)(UNKNOWN) [Concomitant]

REACTIONS (10)
  - Myelodysplastic syndrome [None]
  - Fatigue [None]
  - Malaise [None]
  - Disease progression [None]
  - Anaemia [None]
  - Nausea [None]
  - Constipation [None]
  - Dysplasia [None]
  - Neutropenia [None]
  - Thrombocytopenia [None]
